FAERS Safety Report 6645953-6 (Version None)
Quarter: 2010Q1

REPORT INFORMATION
  Report Type: 
  Country: None (occurrence: None)
  Receive Date: 20100323
  Receipt Date: 20100319
  Transmission Date: 20100710
  Serious: Yes (Death, Life-Threatening)
  Sender: FDA-Public Use
  Company Number: PHHY2010FR02745

PATIENT
  Sex: Male

DRUGS (3)
  1. GLEEVEC [Suspect]
     Indication: MYELOID LEUKAEMIA
     Dosage: 400 MG, UNK
     Dates: start: 20081201
  2. BARACLUDE [Suspect]
     Indication: HEPATITIS B
     Dosage: 0.5 MG, QD
     Route: 048
  3. ZOPICLONE [Suspect]
     Indication: INSOMNIA

REACTIONS (5)
  - COMPLETED SUICIDE [None]
  - DEPRESSION [None]
  - INSOMNIA [None]
  - MYALGIA [None]
  - SUICIDE ATTEMPT [None]
